FAERS Safety Report 12315500 (Version 1)
Quarter: 2016Q2

REPORT INFORMATION
  Report Type: Spontaneous
  Country: US (occurrence: US)
  Receive Date: 20160428
  Receipt Date: 20160428
  Transmission Date: 20160815
  Serious: No
  Sender: FDA-Public Use
  Company Number: US-GLAXOSMITHKLINE-US2016051388

PATIENT
  Age: 56 Year
  Sex: Female

DRUGS (6)
  1. AMLODIPINE [Concomitant]
     Active Substance: AMLODIPINE BESYLATE
  2. FUROSEMIDE. [Concomitant]
     Active Substance: FUROSEMIDE
  3. BREO ELLIPTA [Suspect]
     Active Substance: FLUTICASONE FUROATE\VILANTEROL TRIFENATATE
     Indication: BRONCHITIS
     Dosage: 100/25 MCG, 1 PUFF QD
     Route: 055
     Dates: start: 20160413, end: 20160414
  4. BREO ELLIPTA [Suspect]
     Active Substance: FLUTICASONE FUROATE\VILANTEROL TRIFENATATE
     Indication: ASTHMA
  5. VENTOLIN HFA [Concomitant]
     Active Substance: ALBUTEROL SULFATE
  6. PROMETHAZINE [Concomitant]
     Active Substance: PROMETHAZINE\PROMETHAZINE HYDROCHLORIDE

REACTIONS (4)
  - Palpitations [Recovered/Resolved]
  - Nervousness [Recovered/Resolved]
  - Dyspnoea [Recovered/Resolved]
  - Abdominal discomfort [Recovered/Resolved]

NARRATIVE: CASE EVENT DATE: 20160413
